FAERS Safety Report 9420141 (Version 2)
Quarter: 2013Q4

REPORT INFORMATION
  Report Type: Spontaneous
  Country: PL (occurrence: PL)
  Receive Date: 20130725
  Receipt Date: 20131010
  Transmission Date: 20140711
  Serious: Yes (Hospitalization, Other)
  Sender: FDA-Public Use
  Company Number: PL-ASTRAZENECA-2013SE47889

PATIENT
  Age: 60 Year
  Sex: Female

DRUGS (2)
  1. BRILIQUE [Suspect]
     Route: 048
  2. CLOPIDOGREL [Suspect]
     Route: 065

REACTIONS (2)
  - Thrombosis in device [Unknown]
  - Therapy cessation [Unknown]
